FAERS Safety Report 13493854 (Version 2)
Quarter: 2017Q3

REPORT INFORMATION
  Report Type: Spontaneous
  Country: US (occurrence: US)
  Receive Date: 20170427
  Receipt Date: 20170829
  Transmission Date: 20171127
  Serious: No
  Sender: FDA-Public Use
  Company Number: US-LUNDBECK-DKLU2029500

PATIENT
  Age: 81 Year
  Sex: Male

DRUGS (4)
  1. NORTHERA [Suspect]
     Active Substance: DROXIDOPA
     Indication: PRODUCT USED FOR UNKNOWN INDICATION
     Dosage: SCHEDULE B AND TITRATING
     Route: 065
     Dates: start: 20170406
  2. NORTHERA [Suspect]
     Active Substance: DROXIDOPA
     Dosage: SCHEDULE B AND TITRATING
     Route: 065
  3. NORTHERA [Suspect]
     Active Substance: DROXIDOPA
     Route: 065
  4. MIDODRINE [Concomitant]
     Active Substance: MIDODRINE
     Indication: PRODUCT USED FOR UNKNOWN INDICATION
     Route: 065

REACTIONS (2)
  - Abdominal discomfort [Unknown]
  - Hypotension [Not Recovered/Not Resolved]

NARRATIVE: CASE EVENT DATE: 20170411
